FAERS Safety Report 5454105-7 (Version None)
Quarter: 2007Q3

REPORT INFORMATION
  Report Type: 
  Country: None (occurrence: None)
  Receive Date: 20070917
  Receipt Date: 20060509
  Transmission Date: 20080115
  Serious: No
  Sender: FDA-Public Use
  Company Number: US-ASTRAZENECA-2006UW09079

PATIENT
  Age: 10 Year
  Sex: Female
  Weight: 34.5 kg

DRUGS (2)
  1. SEROQUEL [Suspect]
     Indication: MAJOR DEPRESSION
     Route: 048
     Dates: start: 20060401
  2. SEROQUEL [Suspect]
     Indication: AFFECTIVE DISORDER
     Route: 048
     Dates: start: 20060401

REACTIONS (3)
  - DRY MOUTH [None]
  - HYPOAESTHESIA [None]
  - WEIGHT INCREASED [None]
